FAERS Safety Report 13942709 (Version 2)
Quarter: 2017Q3

REPORT INFORMATION
  Report Type: Report from Study
  Country: US (occurrence: US)
  Receive Date: 20170906
  Receipt Date: 20170929
  Transmission Date: 20171127
  Serious: Yes (Hospitalization)
  Sender: FDA-Public Use
  Company Number: US-VIFOR (INTERNATIONAL) INC.-VIT-2017-09075

PATIENT
  Age: 68 Year
  Sex: Male

DRUGS (27)
  1. TYLENOL [Concomitant]
     Active Substance: ACETAMINOPHEN
  2. STOOL SOFTNER [Concomitant]
  3. CYANOCOBALAMIN. [Concomitant]
     Active Substance: CYANOCOBALAMIN
  4. NITROSTAT [Concomitant]
     Active Substance: NITROGLYCERIN
  5. VITAMINS NOS [Concomitant]
     Active Substance: VITAMINS
  6. PROVENTIL HFA [Concomitant]
     Active Substance: ALBUTEROL SULFATE
  7. MULTAQ [Concomitant]
     Active Substance: DRONEDARONE
  8. ELIQUIS [Concomitant]
     Active Substance: APIXABAN
  9. OMEPRAZOLE. [Concomitant]
     Active Substance: OMEPRAZOLE
  10. METOPROLOL TARTRATE. [Concomitant]
     Active Substance: METOPROLOL TARTRATE
  11. RANEXA [Concomitant]
     Active Substance: RANOLAZINE
  12. CALCITRIOL. [Concomitant]
     Active Substance: CALCITRIOL
  13. COLECALCIFEROL [Concomitant]
     Active Substance: CHOLECALCIFEROL
  14. CLONIDINE. [Concomitant]
     Active Substance: CLONIDINE
  15. GABAPENTIN. [Concomitant]
     Active Substance: GABAPENTIN
  16. COLCRYS [Concomitant]
     Active Substance: COLCHICINE
  17. ATROVENT HFA [Concomitant]
     Active Substance: IPRATROPIUM BROMIDE
  18. LORATADINE. [Concomitant]
     Active Substance: LORATADINE
  19. VELTASSA [Suspect]
     Active Substance: PATIROMER
     Indication: HYPERKALAEMIA
     Route: 048
     Dates: start: 201706, end: 2017
  20. TRAMADOL HYDROCHLORIDE. [Concomitant]
     Active Substance: TRAMADOL HYDROCHLORIDE
  21. ALLOPURINOL. [Concomitant]
     Active Substance: ALLOPURINOL
  22. LANTUS [Concomitant]
     Active Substance: INSULIN GLARGINE
  23. FLOMAX [Concomitant]
     Active Substance: TAMSULOSIN HYDROCHLORIDE
  24. NOVOLOG [Concomitant]
     Active Substance: INSULIN ASPART
  25. ROSUVASTATIN. [Concomitant]
     Active Substance: ROSUVASTATIN
  26. AMLODIPINE [Concomitant]
     Active Substance: AMLODIPINE BESYLATE
  27. ACETYLSALICYLIC ACID [Concomitant]
     Active Substance: ASPIRIN

REACTIONS (5)
  - Product physical issue [Unknown]
  - Fluid overload [Not Recovered/Not Resolved]
  - Product taste abnormal [Unknown]
  - Cardiac ablation [Not Recovered/Not Resolved]
  - Blood potassium decreased [Recovered/Resolved]

NARRATIVE: CASE EVENT DATE: 2017
